FAERS Safety Report 19371604 (Version 1)
Quarter: 2021Q2

REPORT INFORMATION
  Report Type: Other
  Country: BE (occurrence: BE)
  Receive Date: 20210604
  Receipt Date: 20210604
  Transmission Date: 20210717
  Serious: Yes (Life-Threatening, Hospitalization, Other)
  Sender: FDA-Public Use
  Company Number: BE-ASPEN-GLO2021BE004136

PATIENT

DRUGS (15)
  1. DUROGESIC [Concomitant]
     Active Substance: FENTANYL
     Indication: PRODUCT USED FOR UNKNOWN INDICATION
     Dosage: 50 MICROGRAM (1 PATCH/72 HRS)
     Route: 065
  2. LYRICA [Concomitant]
     Active Substance: PREGABALIN
     Indication: PRODUCT USED FOR UNKNOWN INDICATION
     Dosage: 150 MILLIGRAM 1 TAB 2 X/D MORNINGS AND EVENINGS
     Route: 065
  3. DEXAMETHASONE. [Suspect]
     Active Substance: DEXAMETHASONE
     Indication: PLASMA CELL MYELOMA
     Dosage: UNK
     Route: 042
     Dates: start: 20210409, end: 20210416
  4. KYPROLIS [Suspect]
     Active Substance: CARFILZOMIB
     Dosage: 20 MILLIGRAM/SQ. METER ON WEEK 1
     Route: 065
     Dates: end: 20210416
  5. SERLAIN [Concomitant]
     Active Substance: SERTRALINE HYDROCHLORIDE
     Indication: PRODUCT USED FOR UNKNOWN INDICATION
     Dosage: 50 MILLIGRAM, QD (1 X/D MORNINGS)
     Route: 065
  6. TEMESTA [Concomitant]
     Indication: PRODUCT USED FOR UNKNOWN INDICATION
     Dosage: 2.5 MILLIGRAM
     Route: 065
  7. COVERSYL [Concomitant]
     Active Substance: PERINDOPRIL
     Indication: PRODUCT USED FOR UNKNOWN INDICATION
     Dosage: 5 MILLIGRAM (1/2 TAB 1 X/D MORNINGS)
     Route: 065
  8. L?THYROXINE [Concomitant]
     Active Substance: LEVOTHYROXINE
     Dosage: 112.5 ?G
     Route: 065
  9. BISOPROLOL [Concomitant]
     Active Substance: BISOPROLOL
     Indication: ATRIAL FIBRILLATION
     Dosage: 2.5 MILLIGRAM, QD (1 TAB 1 X/D EVENINGS)
     Route: 065
  10. APOCARD RETARD [Concomitant]
     Indication: PRODUCT USED FOR UNKNOWN INDICATION
     Dosage: 200 MILLIGRAM, QD (1 TAB 1 X/D MORNINGS)
     Route: 065
  11. KYPROLIS [Suspect]
     Active Substance: CARFILZOMIB
     Indication: PLASMA CELL MYELOMA
     Dosage: 70 MILLIGRAM/SQ. METER ON WEEK 2
     Route: 042
     Dates: end: 20210416
  12. L?THYROXINE [Concomitant]
     Active Substance: LEVOTHYROXINE
     Indication: PRODUCT USED FOR UNKNOWN INDICATION
     Dosage: 87.5 MICROGRAM, QD (1 X /D MORNINGS)
     Route: 065
  13. TRADONAL [Concomitant]
     Active Substance: TRAMADOL HYDROCHLORIDE
     Indication: PRODUCT USED FOR UNKNOWN INDICATION
     Dosage: 100 MILLIGRAM 1 TAB 2 X/D MORNINGS AND EVENING
     Route: 065
  14. CALCIUM [Concomitant]
     Active Substance: CALCIUM
     Indication: PRODUCT USED FOR UNKNOWN INDICATION
     Dosage: UNK UNK, QD (1 X/D)
     Route: 065
  15. DEXPANTHENOL. [Concomitant]
     Active Substance: DEXPANTHENOL
     Indication: PRODUCT USED FOR UNKNOWN INDICATION
     Dosage: 40 MILLIGRAM, QD (1 TAB 1 X/D MORNINGS)
     Route: 065

REACTIONS (12)
  - Hypothyroidism [Unknown]
  - Escherichia pyelonephritis [Unknown]
  - Off label use [Unknown]
  - Neutropenia [Unknown]
  - Anaemia macrocytic [Unknown]
  - Atrial fibrillation [Recovered/Resolved]
  - Tumour lysis syndrome [Recovered/Resolved]
  - Acute kidney injury [Unknown]
  - Pericardial effusion [Unknown]
  - Leukopenia [Unknown]
  - Thrombocytopenia [Unknown]
  - Hypophosphataemia [Unknown]

NARRATIVE: CASE EVENT DATE: 202104
